FAERS Safety Report 6646694-1 (Version None)
Quarter: 2010Q1

REPORT INFORMATION
  Report Type: 
  Country: None (occurrence: None)
  Receive Date: 20100323
  Receipt Date: 20100311
  Transmission Date: 20100710
  Serious: Yes (Life-Threatening)
  Sender: FDA-Public Use
  Company Number: US-SANOFI-AVENTIS-2010SA014847

PATIENT
  Age: 61 Year
  Sex: Female
  Weight: 147 kg

DRUGS (7)
  1. LOVENOX [Suspect]
     Route: 065
     Dates: start: 20100201, end: 20100201
  2. EFFEXOR [Concomitant]
  3. LIBRIUM [Concomitant]
  4. BUMETANIDE [Concomitant]
  5. TRAMADOL HCL [Concomitant]
  6. BUDESONIDE/FORMOTEROL [Concomitant]
  7. OMEPRAZOLE [Concomitant]

REACTIONS (1)
  - DISSEMINATED INTRAVASCULAR COAGULATION [None]
